FAERS Safety Report 8863058 (Version 1)
Quarter: 2012Q4

REPORT INFORMATION
  Report Type: 
  Country: US (occurrence: US)
  Receive Date: 20121026
  Receipt Date: 20121026
  Transmission Date: 20130627
  Serious: Yes (Other)
  Sender: FDA-Public Use
  Company Number: US-ASTELLAS-2012US010363

PATIENT
  Sex: Female

DRUGS (3)
  1. VESICARE [Suspect]
     Indication: HYPERTONIC BLADDER
     Dosage: 5 mg, Unknown/D
     Route: 048
     Dates: start: 2012, end: 201209
  2. VESICARE [Suspect]
     Dosage: 10 mg, UID/QD
     Route: 048
     Dates: start: 201209
  3. CORTISONE [Concomitant]
     Indication: CERVICAL SPINAL STENOSIS
     Dosage: UNK
     Route: 019

REACTIONS (3)
  - Hypoaesthesia [Not Recovered/Not Resolved]
  - Urinary tract infection [Unknown]
  - Vision blurred [Unknown]
